FAERS Safety Report 6444167-2 (Version None)
Quarter: 2009Q4

REPORT INFORMATION
  Report Type: 
  Country: None (occurrence: None)
  Receive Date: 20091118
  Receipt Date: 20091112
  Transmission Date: 20100525
  Serious: Yes (Hospitalization)
  Sender: FDA-Public Use
  Company Number: US-JNJFOC-20091103962

PATIENT
  Age: 40 Year
  Sex: Female

DRUGS (3)
  1. AMRIX [Suspect]
     Indication: MUSCLE STRAIN
  2. ACETAMINOPHEN AND CODEINE PHOSPHATE [Suspect]
     Indication: DRUG USE FOR UNKNOWN INDICATION
  3. THIORIDAZINE HCL [Suspect]
     Indication: DRUG USE FOR UNKNOWN INDICATION

REACTIONS (3)
  - DELUSION [None]
  - MANIA [None]
  - MULTIPLE DRUG OVERDOSE INTENTIONAL [None]
